FAERS Safety Report 14439629 (Version 1)
Quarter: 2018Q1

REPORT INFORMATION
  Report Type: Spontaneous
  Country: US (occurrence: US)
  Receive Date: 20180125
  Receipt Date: 20180125
  Transmission Date: 20180509
  Serious: No
  Sender: FDA-Public Use
  Company Number: US-UNITED THERAPEUTICS-UNT-2017-014901

PATIENT
  Sex: Female
  Weight: 29.25 kg

DRUGS (7)
  1. REMODULIN [Suspect]
     Active Substance: TREPROSTINIL
     Dosage: 0.020 ?G/KG, CONTINUING
     Route: 058
  2. REMODULIN [Suspect]
     Active Substance: TREPROSTINIL
     Indication: PULMONARY ARTERIAL HYPERTENSION
     Dosage: 0.022 ?G/KG, CONTINUING
     Route: 058
     Dates: end: 2017
  3. NEURONTIN [Suspect]
     Active Substance: GABAPENTIN
     Indication: INFUSION SITE PAIN
     Dosage: UNK
     Route: 065
     Dates: start: 201712
  4. UPTRAVI [Concomitant]
     Active Substance: SELEXIPAG
     Indication: PRODUCT USED FOR UNKNOWN INDICATION
     Route: 065
  5. REMODULIN [Suspect]
     Active Substance: TREPROSTINIL
     Indication: PULMONARY HYPERTENSION
     Dosage: 0.012 ?G/KG, CONTINUING
     Route: 058
     Dates: start: 20170825
  6. COUMADIN [Concomitant]
     Active Substance: WARFARIN SODIUM
     Indication: PRODUCT USED FOR UNKNOWN INDICATION
     Dosage: UNK
     Route: 065
  7. TRACLEER [Concomitant]
     Active Substance: BOSENTAN
     Indication: PRODUCT USED FOR UNKNOWN INDICATION
     Dosage: UNK
     Route: 065

REACTIONS (9)
  - Neuralgia [Unknown]
  - Somnolence [Unknown]
  - Feeling abnormal [Unknown]
  - Infusion site swelling [Unknown]
  - Gait disturbance [Unknown]
  - Dizziness [Unknown]
  - Nausea [Unknown]
  - Infusion site discolouration [Unknown]
  - Infusion site pain [Unknown]

NARRATIVE: CASE EVENT DATE: 2017
